FAERS Safety Report 11029489 (Version 13)
Quarter: 2019Q2

REPORT INFORMATION
  Report Type: Report from Study
  Country: CA (occurrence: CA)
  Receive Date: 20150415
  Receipt Date: 20190412
  Transmission Date: 20190711
  Serious: Yes (Other)
  Sender: FDA-Public Use
  Company Number: CA-ROCHE-1338352

PATIENT
  Age: 52 Year
  Sex: Female
  Weight: 90.7 kg

DRUGS (29)
  1. ACTEMRA [Suspect]
     Active Substance: TOCILIZUMAB
     Indication: RHEUMATOID ARTHRITIS
     Route: 042
     Dates: start: 20111220, end: 20120223
  2. PREDNISONE. [Concomitant]
     Active Substance: PREDNISONE
  3. METHYLPREDNISOLONE. [Concomitant]
     Active Substance: METHYLPREDNISOLONE
     Indication: PREMEDICATION
     Route: 042
     Dates: start: 20140121
  4. DIAMICRON [Concomitant]
     Active Substance: GLICLAZIDE
  5. RITUXAN [Suspect]
     Active Substance: RITUXIMAB
     Route: 042
     Dates: start: 20150401
  6. ONGLYZA [Suspect]
     Active Substance: SAXAGLIPTIN HYDROCHLORIDE
     Indication: DIABETES MELLITUS
     Route: 065
     Dates: start: 20140512
  7. ACETAMINOPHEN. [Concomitant]
     Active Substance: ACETAMINOPHEN
     Indication: PREMEDICATION
     Route: 048
     Dates: start: 20140121
  8. CELEBREX [Concomitant]
     Active Substance: CELECOXIB
  9. RIVA D [Concomitant]
  10. PANTOPRAZOLE [Concomitant]
     Active Substance: PANTOPRAZOLE
  11. PREMARIN [Concomitant]
     Active Substance: ESTROGENS, CONJUGATED
  12. PRAMIPEXOLE. [Concomitant]
     Active Substance: PRAMIPEXOLE
  13. HUMULIN NOS [Concomitant]
     Active Substance: INSULIN HUMAN
     Route: 065
  14. RITUXAN [Suspect]
     Active Substance: RITUXIMAB
     Dosage: LAST  RITUXAN INFUSION: 07-OCT-2014
     Route: 042
     Dates: start: 20140923
  15. PRAMIPEXOLE. [Concomitant]
     Active Substance: PRAMIPEXOLE
  16. METFORMIN [Concomitant]
     Active Substance: METFORMIN HYDROCHLORIDE
  17. RISEDRONATE [Concomitant]
     Active Substance: RISEDRONATE SODIUM
  18. VESICARE [Concomitant]
     Active Substance: SOLIFENACIN SUCCINATE
  19. RITUXAN [Suspect]
     Active Substance: RITUXIMAB
     Indication: RHEUMATOID ARTHRITIS
     Route: 042
     Dates: start: 20140121
  20. RITUXAN [Suspect]
     Active Substance: RITUXIMAB
     Route: 042
     Dates: start: 20150331
  21. FOLIC ACID. [Concomitant]
     Active Substance: FOLIC ACID
  22. TEVA HYDROMORPHONE [Concomitant]
  23. EMTEC (CANADA) [Concomitant]
  24. DIPHENHYDRAMINE HCL [Concomitant]
     Active Substance: DIPHENHYDRAMINE HYDROCHLORIDE
     Indication: PREMEDICATION
     Route: 048
     Dates: start: 20140121
  25. NEURONTIN [Concomitant]
     Active Substance: GABAPENTIN
  26. OXAZEPAM. [Concomitant]
     Active Substance: OXAZEPAM
  27. INSULIN [Concomitant]
     Active Substance: INSULIN NOS
  28. PANTOLOC [Concomitant]
     Active Substance: PANTOPRAZOLE SODIUM
  29. METHOTREXATE. [Concomitant]
     Active Substance: METHOTREXATE

REACTIONS (33)
  - Acne [Unknown]
  - Thermal burn [Recovering/Resolving]
  - Heart rate decreased [Unknown]
  - Feeling of body temperature change [Unknown]
  - Cyst [Unknown]
  - Nausea [Not Recovered/Not Resolved]
  - Infusion related reaction [Unknown]
  - Pain in extremity [Unknown]
  - Blood pressure diastolic decreased [Unknown]
  - Blood glucose increased [Unknown]
  - Diarrhoea [Recovered/Resolved]
  - Musculoskeletal pain [Unknown]
  - Sinusitis [Not Recovered/Not Resolved]
  - Neuralgia [Unknown]
  - Pharyngeal oedema [Not Recovered/Not Resolved]
  - Infusion related reaction [Recovered/Resolved]
  - Nasopharyngitis [Unknown]
  - Oxygen saturation decreased [Unknown]
  - Arthralgia [Not Recovered/Not Resolved]
  - Heart rate decreased [Unknown]
  - Loss of consciousness [Recovered/Resolved]
  - Dizziness [Not Recovered/Not Resolved]
  - Erythema [Unknown]
  - Fall [Unknown]
  - Decreased appetite [Not Recovered/Not Resolved]
  - Rash [Not Recovered/Not Resolved]
  - Scab [Recovering/Resolving]
  - Fatigue [Not Recovered/Not Resolved]
  - Asthenia [Not Recovered/Not Resolved]
  - Hypertension [Recovered/Resolved]
  - Blood pressure fluctuation [Unknown]
  - Joint stiffness [Not Recovered/Not Resolved]
  - Blood pressure diastolic abnormal [Unknown]

NARRATIVE: CASE EVENT DATE: 20140121
